FAERS Safety Report 16458649 (Version 1)
Quarter: 2019Q2

REPORT INFORMATION
  Report Type: Spontaneous
  Country: US (occurrence: US)
  Receive Date: 20190620
  Receipt Date: 20190620
  Transmission Date: 20190711
  Serious: No
  Sender: FDA-Public Use
  Company Number: US-THERAPEUTICSMD-2019TMD00561

PATIENT
  Age: 71 Year
  Sex: Female
  Weight: 47.62 kg

DRUGS (4)
  1. IMVEXXY [Suspect]
     Active Substance: ESTRADIOL
     Indication: DYSPAREUNIA
     Dosage: 10 ?G, 1X/DAY IN THE MORNING
     Route: 067
     Dates: start: 201903, end: 201903
  2. ESTROGEL [Concomitant]
     Active Substance: ESTRADIOL
  3. IMVEXXY [Suspect]
     Active Substance: ESTRADIOL
     Dosage: 10 ?G, 2X/WEEK IN THE MORNING
     Route: 067
     Dates: start: 201903, end: 20190329
  4. ESTROGEN RING [Concomitant]
     Active Substance: ESTRADIOL

REACTIONS (2)
  - Hypotension [Not Recovered/Not Resolved]
  - Contusion [Not Recovered/Not Resolved]

NARRATIVE: CASE EVENT DATE: 20190324
